FAERS Safety Report 10964854 (Version 1)
Quarter: 2015Q1

REPORT INFORMATION
  Report Type: Spontaneous
  Country: US (occurrence: US)
  Receive Date: 20150330
  Receipt Date: 20150330
  Transmission Date: 20150721
  Serious: No
  Sender: FDA-Public Use
  Company Number: US-TEVA-503634USA

PATIENT
  Sex: Female
  Weight: 50.85 kg

DRUGS (3)
  1. LEVOTHYROXINE [Suspect]
     Active Substance: LEVOTHYROXINE
     Indication: HYPOTHYROIDISM
     Route: 065
     Dates: start: 2011
  2. LEVAQUIN [Suspect]
     Active Substance: LEVOFLOXACIN
     Route: 065
  3. WARFARIN [Suspect]
     Active Substance: WARFARIN
     Route: 065
     Dates: start: 1995

REACTIONS (4)
  - Nail disorder [Unknown]
  - Wrong technique in drug usage process [Unknown]
  - Alopecia [Not Recovered/Not Resolved]
  - Drug prescribing error [Unknown]

NARRATIVE: CASE EVENT DATE: 2012
